FAERS Safety Report 6331086-5 (Version None)
Quarter: 2009Q3

REPORT INFORMATION
  Report Type: 
  Country: None (occurrence: None)
  Receive Date: 20090827
  Receipt Date: 20090819
  Transmission Date: 20100115
  Serious: Yes (Other)
  Sender: FDA-Public Use
  Company Number: US-ASTRAZENECA-2009SE08979

PATIENT
  Age: 68 Year
  Sex: Female

DRUGS (4)
  1. ARIMIDEX [Suspect]
     Route: 048
  2. ASPIRIN [Concomitant]
  3. DIGOXIN [Concomitant]
  4. RISPERDIAL [Concomitant]

REACTIONS (1)
  - ISCHAEMIC STROKE [None]
